FAERS Safety Report 10403157 (Version 1)
Quarter: 2014Q3

REPORT INFORMATION
  Report Type: Spontaneous
  Country: CA (occurrence: CA)
  Receive Date: 20140822
  Receipt Date: 20140822
  Transmission Date: 20150326
  Serious: Yes (Other)
  Sender: FDA-Public Use
  Company Number: CA-GLAXOSMITHKLINE-A1085636A

PATIENT
  Age: 63 Year
  Sex: Female
  Weight: 60 kg

DRUGS (8)
  1. COCONUT OIL [Concomitant]
     Active Substance: COCONUT OIL
  2. GLUCOSAMINE [Concomitant]
     Active Substance: GLUCOSAMINE
  3. CHONDROITIN [Concomitant]
     Active Substance: CHONDROITIN
  4. ATROVENT [Concomitant]
     Active Substance: IPRATROPIUM BROMIDE
  5. PREDNISONE. [Concomitant]
     Active Substance: PREDNISONE
  6. ADVAIR HFA [Suspect]
     Active Substance: FLUTICASONE PROPIONATE\SALMETEROL XINAFOATE
     Indication: PRODUCT USED FOR UNKNOWN INDICATION
     Dosage: 500MCG TWICE PER DAY
     Route: 055
  7. OREGANO OIL [Concomitant]
  8. VENTOLIN [Concomitant]
     Active Substance: ALBUTEROL SULFATE

REACTIONS (6)
  - Hypersensitivity [Recovered/Resolved]
  - Swollen tongue [Recovered/Resolved]
  - Oropharyngeal pain [Recovered/Resolved]
  - Lymphadenopathy [Recovered/Resolved]
  - Dyspnoea [Recovered/Resolved]
  - Lip swelling [Recovered/Resolved]
